FAERS Safety Report 13189819 (Version 2)
Quarter: 2017Q1

REPORT INFORMATION
  Report Type: Spontaneous
  Country: BE (occurrence: BE)
  Receive Date: 20170206
  Receipt Date: 20170216
  Transmission Date: 20170428
  Serious: Yes (Hospitalization)
  Sender: FDA-Public Use
  Company Number: BE-GLAXOSMITHKLINE-BE2017GSK014851

PATIENT
  Age: 71 Year
  Sex: Female
  Weight: 58 kg

DRUGS (8)
  1. XARELTO [Concomitant]
     Active Substance: RIVAROXABAN
  2. DICLOFENAC [Suspect]
     Active Substance: DICLOFENAC
     Indication: BONE PAIN
  3. ZALDIAR [Suspect]
     Active Substance: ACETAMINOPHEN\TRAMADOL HYDROCHLORIDE
     Indication: BONE PAIN
  4. EMCONCOR [Concomitant]
     Active Substance: BISOPROLOL FUMARATE
  5. VOLTAREN [Suspect]
     Active Substance: DICLOFENAC SODIUM
     Indication: BONE PAIN
     Route: 030
  6. APOCARD [Concomitant]
     Active Substance: FLECAINIDE ACETATE
  7. COVERSYL [Concomitant]
     Active Substance: PERINDOPRIL
     Dosage: UNK
  8. DAFALGAN [Suspect]
     Active Substance: ACETAMINOPHEN
     Indication: BONE PAIN

REACTIONS (3)
  - Vomiting [Recovering/Resolving]
  - Nausea [Recovering/Resolving]
  - Gastric disorder [Not Recovered/Not Resolved]

NARRATIVE: CASE EVENT DATE: 20170122
